FAERS Safety Report 7074544-0 (Version None)
Quarter: 2010Q4

REPORT INFORMATION
  Report Type: 
  Country: None (occurrence: None)
  Receive Date: 20101029
  Receipt Date: 20101020
  Transmission Date: 20110411
  Serious: Yes (Hospitalization)
  Sender: FDA-Public Use
  Company Number: US-JNJFOC-20101005771

PATIENT
  Age: 84 Year
  Sex: Female
  Weight: 63.5 kg

DRUGS (6)
  1. MAXIMUM STRENGTH TYLENOL SINUS [Suspect]
     Indication: SINUS HEADACHE
  2. SALUTENSIN [Concomitant]
     Indication: HYPERTENSION
  3. ZOCOR [Concomitant]
     Indication: BLOOD CHOLESTEROL INCREASED
  4. BRIMONIDINE TARTRATE [Concomitant]
     Indication: GLAUCOMA
  5. XALATAN [Concomitant]
     Indication: GLAUCOMA
  6. TIMOPTIC [Concomitant]
     Indication: GLAUCOMA

REACTIONS (3)
  - BLISTER [None]
  - EXPIRED DRUG ADMINISTERED [None]
  - RASH MACULO-PAPULAR [None]
